FAERS Safety Report 20864554 (Version 1)
Quarter: 2022Q2

REPORT INFORMATION
  Report Type: Spontaneous
  Country: FR (occurrence: FR)
  Receive Date: 20220524
  Receipt Date: 20220524
  Transmission Date: 20220721
  Serious: Yes (Hospitalization)
  Sender: FDA-Public Use
  Company Number: None

PATIENT
  Age: 63 Year
  Sex: Female

DRUGS (6)
  1. FENTANYL [Suspect]
     Active Substance: FENTANYL
     Indication: Pain
     Route: 062
     Dates: end: 20210710
  2. OXYCODONE [Suspect]
     Active Substance: OXYCODONE
     Indication: Pain
     Route: 048
     Dates: end: 20210710
  3. OXYCODONE [Suspect]
     Active Substance: OXYCODONE
     Indication: Headache
  4. MORPHINE SULFATE [Suspect]
     Active Substance: MORPHINE SULFATE
     Indication: Pain
     Route: 048
     Dates: end: 20210710
  5. MORPHINE [Suspect]
     Active Substance: MORPHINE
     Indication: Pain
     Route: 042
     Dates: start: 20210710, end: 20210710
  6. MORPHINE [Suspect]
     Active Substance: MORPHINE
     Indication: Headache

REACTIONS (2)
  - Hypercapnic coma [Recovered/Resolved]
  - Overdose [Recovered/Resolved]

NARRATIVE: CASE EVENT DATE: 20210710
